FAERS Safety Report 9062535 (Version 1)
Quarter: 2013Q1

REPORT INFORMATION
  Report Type: Spontaneous
  Country: IT (occurrence: IT)
  Receive Date: 20130128
  Receipt Date: 20130128
  Transmission Date: 20140127
  Serious: Yes (Other)
  Sender: FDA-Public Use
  Company Number: IT-BRISTOL-MYERS SQUIBB COMPANY-17299306

PATIENT
  Sex: Male

DRUGS (2)
  1. ENTECAVIR [Suspect]
     Indication: CHRONIC HEPATITIS B
  2. METFORMIN HCL [Suspect]
     Indication: DIABETES MELLITUS

REACTIONS (2)
  - Motor neurone disease [Recovering/Resolving]
  - Lactic acidosis [Recovering/Resolving]
